FAERS Safety Report 17150162 (Version 4)
Quarter: 2020Q3

REPORT INFORMATION
  Report Type: Spontaneous
  Country: FR (occurrence: FR)
  Receive Date: 20191213
  Receipt Date: 20200708
  Transmission Date: 20201102
  Serious: Yes (Hospitalization)
  Sender: FDA-Public Use
  Company Number: FR-MYLANLABS-2019M1123868

PATIENT
  Age: 68 Year
  Sex: Female

DRUGS (6)
  1. BORTEZOMIB. [Suspect]
     Active Substance: BORTEZOMIB
     Indication: PLASMA CELL MYELOMA
     Dosage: THERAPY DATES: 09?JUL?2019, 12?JUL?2019, 16?JUL?2019,19?JUL?2019
     Route: 058
     Dates: start: 20190305, end: 20190719
  2. DARATUMUMAB [Suspect]
     Active Substance: DARATUMUMAB
     Indication: PLASMA CELL MYELOMA
     Dosage: 1800 MILLIGRAM, Q3W
     Route: 058
     Dates: start: 20190305, end: 20190709
  3. BORTEZOMIB. [Suspect]
     Active Substance: BORTEZOMIB
     Dosage: THERAPY DATES: 06/AUG/2019, 09/AUG/2019, 13/AUG/2019, 16/AUG/2019
     Route: 058
     Dates: start: 20190806, end: 20190816
  4. LENALIDOMIDE [Suspect]
     Active Substance: LENALIDOMIDE
     Indication: PLASMA CELL MYELOMA
     Dosage: 10 MILLIGRAM
     Route: 048
  5. DEXAMETHASONE. [Suspect]
     Active Substance: DEXAMETHASONE
     Indication: PLASMA CELL MYELOMA
     Dosage: 20 MILLIGRAM
     Dates: start: 20190305, end: 20190720
  6. LENALIDOMIDE [Suspect]
     Active Substance: LENALIDOMIDE
     Dosage: 25 MILLIGRAM
     Route: 048
     Dates: start: 20190305, end: 20190722

REACTIONS (3)
  - Pyrexia [Not Recovered/Not Resolved]
  - Pneumonitis [Recovered/Resolved]
  - Pneumonia [Recovered/Resolved]

NARRATIVE: CASE EVENT DATE: 20190723
